FAERS Safety Report 4848524-7 (Version None)
Quarter: 2005Q4

REPORT INFORMATION
  Report Type: 
  Country: None (occurrence: None)
  Receive Date: 20051206
  Receipt Date: 20051121
  Transmission Date: 20060501
  Serious: Yes (Other)
  Sender: FDA-Public Use
  Company Number: USA0510109861

PATIENT
  Age: 72 Year
  Sex: Male

DRUGS (3)
  1. CIALIS [Suspect]
     Indication: ERECTILE DYSFUNCTION
     Dosage: 10 MG, ORAL
     Route: 048
     Dates: start: 20050901
  2. GLUCOSAMINE SULFATE                                        (GLUCOSAMIN [Concomitant]
  3. FLOMAX [Concomitant]

REACTIONS (7)
  - DRUG INEFFECTIVE [None]
  - EYE IRRITATION [None]
  - EYE PRURITUS [None]
  - HEADACHE [None]
  - OPTIC ISCHAEMIC NEUROPATHY [None]
  - PHOTOPHOBIA [None]
  - VISUAL FIELD DEFECT [None]
